FAERS Safety Report 19779311 (Version 1)
Quarter: 2021Q3

REPORT INFORMATION
  Report Type: Spontaneous
  Country: US (occurrence: US)
  Receive Date: 20210902
  Receipt Date: 20210902
  Transmission Date: 20211014
  Serious: Yes (Life-Threatening, Hospitalization, Disabling, Other)
  Sender: FDA-Public Use
  Company Number: None

PATIENT
  Age: 31 Year
  Sex: Female
  Weight: 58.95 kg

DRUGS (6)
  1. LAMOTRIGINE 25 MG [Concomitant]
     Active Substance: LAMOTRIGINE
     Dates: start: 20210806, end: 20210813
  2. HYDROXYZINE 10 MG TID PRN [Concomitant]
     Dates: start: 20210806
  3. LAMOTRIGINE. [Suspect]
     Active Substance: LAMOTRIGINE
     Indication: BIPOLAR DISORDER
     Route: 048
     Dates: start: 20210827, end: 20210828
  4. LAMOTRIGINE 50 MG [Concomitant]
     Active Substance: LAMOTRIGINE
     Dates: start: 20210813, end: 20210820
  5. LAMOTRIGINE 100 MG [Concomitant]
     Active Substance: LAMOTRIGINE
     Dates: start: 20210820, end: 20210827
  6. ESCITALOPRAM [Concomitant]
     Active Substance: ESCITALOPRAM OXALATE
     Dates: start: 20210806

REACTIONS (2)
  - Toxic epidermal necrolysis [None]
  - Sjogren^s syndrome [None]

NARRATIVE: CASE EVENT DATE: 20210831
